FAERS Safety Report 20863193 (Version 1)
Quarter: 2022Q2

REPORT INFORMATION
  Report Type: Spontaneous
  Country: AR (occurrence: AR)
  Receive Date: 20220523
  Receipt Date: 20220523
  Transmission Date: 20220721
  Serious: Yes (Hospitalization, Other)
  Sender: FDA-Public Use
  Company Number: AR-PFIZER INC-202200655240

PATIENT
  Age: 52 Year
  Sex: Female

DRUGS (4)
  1. IBRANCE [Suspect]
     Active Substance: PALBOCICLIB
     Indication: Breast cancer metastatic
     Dosage: 150 MG, UNSPECIFIED FREQUENCY
     Dates: start: 20190415, end: 201907
  2. IBRANCE [Suspect]
     Active Substance: PALBOCICLIB
     Dosage: 100 MG, CYCLIC (DAILY, SCHEME 3X1)
     Dates: start: 201907, end: 20220502
  3. LETROZOLE [Concomitant]
     Active Substance: LETROZOLE
     Indication: Breast cancer metastatic
     Dosage: UNK UNK, 1X/DAY
     Dates: start: 20190415
  4. ZOLEDRONIC ACID [Concomitant]
     Active Substance: ZOLEDRONIC ACID
     Dosage: UNK
     Dates: start: 201904

REACTIONS (5)
  - Febrile neutropenia [Unknown]
  - Adverse event [Unknown]
  - Off label use [Unknown]
  - Full blood count decreased [Not Recovered/Not Resolved]
  - Influenza [Not Recovered/Not Resolved]
